FAERS Safety Report 14158148 (Version 1)
Quarter: 2017Q4

REPORT INFORMATION
  Report Type: Spontaneous
  Country: GB (occurrence: GB)
  Receive Date: 20171103
  Receipt Date: 20171103
  Transmission Date: 20180321
  Serious: Yes (Other)
  Sender: FDA-Public Use
  Company Number: GB-ASTRAZENECA-2017SF11018

PATIENT
  Age: 68 Year
  Sex: Female

DRUGS (1)
  1. TAGRISSO [Suspect]
     Active Substance: OSIMERTINIB
     Indication: LUNG CANCER METASTATIC
     Route: 048
     Dates: start: 201709, end: 20171016

REACTIONS (3)
  - Skin lesion [Unknown]
  - Rash erythematous [Unknown]
  - Blister [Unknown]

NARRATIVE: CASE EVENT DATE: 20171009
